FAERS Safety Report 24200467 (Version 1)
Quarter: 2024Q3

REPORT INFORMATION
  Report Type: Spontaneous
  Country: TR (occurrence: TR)
  Receive Date: 20240812
  Receipt Date: 20240812
  Transmission Date: 20241017
  Serious: Yes (Life-Threatening)
  Sender: OTSUKA
  Company Number: TR-OTSUKA-BMS-2016-022003

PATIENT
  Age: 32 Year
  Sex: Female

DRUGS (11)
  1. ARIPIPRAZOLE [Interacting]
     Active Substance: ARIPIPRAZOLE
     Indication: Delusion
     Dosage: 5 MG, QD
     Route: 065
  2. ARIPIPRAZOLE [Interacting]
     Active Substance: ARIPIPRAZOLE
     Indication: Anger
     Dosage: UNK (RESTARTED)
     Route: 065
  3. ARIPIPRAZOLE [Interacting]
     Active Substance: ARIPIPRAZOLE
     Indication: Irritability
  4. ARIPIPRAZOLE [Interacting]
     Active Substance: ARIPIPRAZOLE
     Indication: Screaming
  5. ARIPIPRAZOLE [Interacting]
     Active Substance: ARIPIPRAZOLE
     Indication: Weight increased
  6. ARIPIPRAZOLE [Interacting]
     Active Substance: ARIPIPRAZOLE
     Indication: Psychotic disorder
  7. WARFARIN [Interacting]
     Active Substance: WARFARIN
     Indication: Superior sagittal sinus thrombosis
     Dosage: UNK
     Route: 048
  8. QUETIAPINE [Concomitant]
     Active Substance: QUETIAPINE
     Indication: Delusion
     Dosage: 300 MG, QD
     Route: 065
  9. QUETIAPINE [Concomitant]
     Active Substance: QUETIAPINE
     Indication: Anger
  10. QUETIAPINE [Concomitant]
     Active Substance: QUETIAPINE
     Indication: Irritability
  11. QUETIAPINE [Concomitant]
     Active Substance: QUETIAPINE
     Indication: Screaming

REACTIONS (4)
  - International normalised ratio increased [Recovered/Resolved]
  - Haemorrhagic diathesis [Unknown]
  - Potentiating drug interaction [Unknown]
  - Product use in unapproved indication [Unknown]
